FAERS Safety Report 5474597-7 (Version None)
Quarter: 2007Q4

REPORT INFORMATION
  Report Type: 
  Country: None (occurrence: None)
  Receive Date: 20071002
  Receipt Date: 20070924
  Transmission Date: 20080405
  Serious: Yes (Hospitalization)
  Sender: FDA-Public Use
  Company Number: CH-ASTRAZENECA-2007PK02016

PATIENT
  Age: 89 Year
  Sex: Female

DRUGS (7)
  1. SEROQUEL [Suspect]
     Indication: DEMENTIA
     Route: 048
     Dates: start: 20070615, end: 20070618
  2. SEROQUEL [Suspect]
     Route: 048
     Dates: start: 20070619, end: 20070624
  3. SEROQUEL [Suspect]
     Route: 048
     Dates: start: 20070625, end: 20070628
  4. SEROQUEL [Suspect]
     Route: 048
     Dates: start: 20070629, end: 20070705
  5. SEROQUEL [Suspect]
     Route: 048
     Dates: start: 20070706
  6. METO ZEROK [Concomitant]
     Route: 048
     Dates: start: 20070401
  7. LISINOPRIL [Concomitant]
     Route: 048
     Dates: start: 20070401

REACTIONS (1)
  - DIPLOPIA [None]
